FAERS Safety Report 5273832-8 (Version None)
Quarter: 2007Q1

REPORT INFORMATION
  Report Type: 
  Country: None (occurrence: None)
  Receive Date: 20070323
  Receipt Date: 20070319
  Transmission Date: 20070707
  Serious: Yes (Hospitalization)
  Sender: FDA-Public Use
  Company Number: JP-AVENTIS-200710702JP

PATIENT
  Age: 89 Year
  Sex: Female

DRUGS (2)
  1. AMARYL [Suspect]
     Route: 048
     Dates: start: 20041101, end: 20050701
  2. UNKNOWN DRUG [Suspect]

REACTIONS (2)
  - PANCYTOPENIA [None]
  - SEPSIS [None]
